FAERS Safety Report 4975240-3 (Version None)
Quarter: 2006Q2

REPORT INFORMATION
  Report Type: 
  Country: None (occurrence: None)
  Receive Date: 20060417
  Receipt Date: 20060417
  Transmission Date: 20061013
  Serious: Yes (Hospitalization)
  Sender: FDA-Public Use
  Company Number: None

PATIENT
  Age: 59 Year
  Sex: Male
  Weight: 66.6788 kg

DRUGS (21)
  1. DOCETAXEL [Suspect]
     Indication: NEOPLASM MALIGNANT
     Dosage: 18.75MG/M2  IV
     Route: 042
     Dates: start: 20060403
  2. FLUOROURACIL [Suspect]
     Indication: NEOPLASM MALIGNANT
     Dosage: 600MG/M2  CIV
     Route: 042
     Dates: start: 20060403, end: 20060407
  3. ACETAMINOPHEN [Concomitant]
  4. ALLOPURINOL [Concomitant]
  5. ATENOLOL [Concomitant]
  6. DUCOSATE SODIUM [Concomitant]
  7. EPOTIN ALFA [Concomitant]
  8. LISINOPRIL [Concomitant]
  9. INSULIN [Concomitant]
  10. MAALOX FAST BLOCKER [Concomitant]
  11. NYSTATIN [Concomitant]
  12. OMEPRAZOLE [Concomitant]
  13. ONDANSETRON [Concomitant]
  14. PRNTOXIFYLLINE [Concomitant]
  15. PROCHOLOROPERAZINE [Concomitant]
  16. MAGNESIUM OXIDECHOLESTYRAMINE [Concomitant]
  17. CHLORHEXADINE [Concomitant]
  18. ENOXAPARIN SODIUM [Concomitant]
  19. MORPHINE SULFATE [Concomitant]
  20. DILTAIZEM [Concomitant]
  21. LIDOCAINE HCL VISCOUS [Concomitant]

REACTIONS (4)
  - AZOTAEMIA [None]
  - LETHARGY [None]
  - ORAL INTAKE REDUCED [None]
  - STOMATITIS [None]
